FAERS Safety Report 21206351 (Version 2)
Quarter: 2022Q3

REPORT INFORMATION
  Report Type: Report from Study
  Country: JP (occurrence: JP)
  Receive Date: 20220812
  Receipt Date: 20220816
  Transmission Date: 20221027
  Serious: Yes (Death, Hospitalization)
  Sender: FDA-Public Use
  Company Number: JP-CHUGAI-2022028943AA

PATIENT
  Age: 65 Year
  Sex: Female
  Weight: 33.6 kg

DRUGS (2)
  1. BEVACIZUMAB [Suspect]
     Active Substance: BEVACIZUMAB
     Indication: Hormone receptor positive HER2 negative breast cancer
     Route: 042
     Dates: start: 20220617, end: 20220729
  2. PACLITAXEL [Suspect]
     Active Substance: PACLITAXEL
     Indication: Hormone receptor positive HER2 negative breast cancer
     Route: 041
     Dates: start: 20220617, end: 20220729

REACTIONS (1)
  - Gastric haemorrhage [Fatal]

NARRATIVE: CASE EVENT DATE: 20220801
